FAERS Safety Report 7809281-5 (Version None)
Quarter: 2011Q4

REPORT INFORMATION
  Report Type: 
  Country: None (occurrence: None)
  Receive Date: 20111006
  Receipt Date: 20110921
  Transmission Date: 20120403
  Serious: Yes (Other)
  Sender: FDA-Public Use
  Company Number: DSJ-2011-20692

PATIENT
  Age: 8 Decade
  Sex: Female

DRUGS (5)
  1. HYDROCHLOROTHIAZIDE/AMILORIDE(HYDROCHLOROTHIASIZE, AMILORIDE) (HYDROCH [Concomitant]
  2. SIMVASTATIN [Suspect]
     Indication: ARTERIOSCLEROSIS
     Dosage: 20 MG, PER ORAL
     Route: 048
     Dates: start: 20060101
  3. AMIODARONE HCL [Concomitant]
  4. BENICAR [Suspect]
     Indication: HYPERTENSION
     Dosage: 20 MG ( 20 MG, 1 IN 1 D) , PER ORAL
     Route: 048
     Dates: end: 20110901
  5. CLONAZEPAM [Concomitant]

REACTIONS (4)
  - ARTERIOSCLEROSIS [None]
  - DRUG INEFFECTIVE [None]
  - DEPRESSION [None]
  - HYPOTHYROIDISM [None]
